FAERS Safety Report 10634192 (Version 1)
Quarter: 2014Q4

REPORT INFORMATION
  Report Type: Spontaneous
  Country: US (occurrence: None)
  Receive Date: 20141203
  Receipt Date: 20141203
  Transmission Date: 20150529
  Serious: Yes (Hospitalization, Disabling)
  Sender: FDA-Public Use
  Company Number: None

PATIENT
  Age: 25 Year
  Sex: Female
  Weight: 81.65 kg

DRUGS (1)
  1. MINOCYCLINE [Suspect]
     Active Substance: MINOCYCLINE\MINOCYCLINE HYDROCHLORIDE
     Indication: ACNE
     Dosage: 1 IN THE MORNING.
     Dates: start: 20140415, end: 20140519

REACTIONS (3)
  - Intracranial pressure increased [None]
  - Blindness [None]
  - Vision blurred [None]

NARRATIVE: CASE EVENT DATE: 20140523
